FAERS Safety Report 6317246-8 (Version None)
Quarter: 2009Q3

REPORT INFORMATION
  Report Type: 
  Country: None (occurrence: None)
  Receive Date: 20090819
  Receipt Date: 20090807
  Transmission Date: 20100115
  Serious: Yes (Death)
  Sender: FDA-Public Use
  Company Number: 2009AL003924

PATIENT
  Age: 74 Year
  Sex: Male

DRUGS (7)
  1. DIGOXIN [Suspect]
     Dosage: 0.125 MG, PO
     Route: 048
  2. FINASTERIDE [Concomitant]
  3. SIMVASTATIN [Concomitant]
  4. COUMADIN [Concomitant]
  5. TRAVATAN [Concomitant]
  6. DOXAZOSIN MESYLATE [Concomitant]
  7. VYTORIN [Concomitant]

REACTIONS (10)
  - AORTIC VALVE INCOMPETENCE [None]
  - CARDIOMYOPATHY [None]
  - DILATATION VENTRICULAR [None]
  - ECONOMIC PROBLEM [None]
  - EJECTION FRACTION DECREASED [None]
  - HEART VALVE INCOMPETENCE [None]
  - HYPOKINESIA [None]
  - LEFT ATRIAL DILATATION [None]
  - MITRAL VALVE CALCIFICATION [None]
  - MYOCARDIAL INFARCTION [None]
